FAERS Safety Report 7995154-4 (Version None)
Quarter: 2011Q4

REPORT INFORMATION
  Report Type: 
  Country: None (occurrence: None)
  Receive Date: 20111220
  Receipt Date: 20111214
  Transmission Date: 20120403
  Serious: Yes (Disabling)
  Sender: FDA-Public Use
  Company Number: JP-GLAXOSMITHKLINE-B0764298A

PATIENT
  Sex: Male

DRUGS (8)
  1. ROZEREM [Concomitant]
     Indication: INSOMNIA
     Dosage: 8MG PER DAY
     Route: 048
  2. LAMICTAL [Suspect]
     Dosage: 75MG PER DAY
     Route: 048
     Dates: start: 20111105, end: 20111116
  3. LAMICTAL [Suspect]
     Indication: BIPOLAR DISORDER
     Dosage: 25MG PER DAY
     Route: 048
     Dates: start: 20111008, end: 20111021
  4. LITHIUM CARBONATE [Concomitant]
     Indication: BIPOLAR DISORDER
     Dosage: 400MG PER DAY
     Route: 048
  5. SEROQUEL [Concomitant]
     Indication: BIPOLAR DISORDER
     Dosage: 200MG PER DAY
     Route: 048
  6. LENDORMIN [Concomitant]
     Indication: INSOMNIA
     Dosage: .25MG PER DAY
     Route: 048
  7. LAMICTAL [Suspect]
     Dosage: 50MG PER DAY
     Route: 048
     Dates: start: 20111022, end: 20111104
  8. ZOLOFT [Concomitant]
     Indication: BIPOLAR DISORDER
     Dosage: 75MG PER DAY
     Route: 048

REACTIONS (5)
  - GENERALISED ERYTHEMA [None]
  - SKIN DISORDER [None]
  - PAPULE [None]
  - RASH [None]
  - DRUG ERUPTION [None]
